FAERS Safety Report 9457483 (Version 1)
Quarter: 2013Q3

REPORT INFORMATION
  Report Type: Spontaneous
  Country: CA (occurrence: None)
  Receive Date: 20130812
  Receipt Date: 20130812
  Transmission Date: 20140515
  Serious: Yes (Life-Threatening, Hospitalization)
  Sender: FDA-Public Use
  Company Number: None

PATIENT
  Age: 46 Year
  Sex: Female
  Weight: 72.58 kg

DRUGS (1)
  1. LYRICA 150 MG HARTKAPSELN [Suspect]
     Indication: MUSCULOSKELETAL PAIN
     Dosage: THERAPY ?08/17/2013-02/01/2027?150 AS NEEDED TAKEN BY MOUTH
     Route: 048

REACTIONS (3)
  - Depression [None]
  - Suicidal ideation [None]
  - Weight increased [None]
